FAERS Safety Report 5664052-3 (Version None)
Quarter: 2008Q1

REPORT INFORMATION
  Report Type: 
  Country: None (occurrence: None)
  Receive Date: 20080314
  Receipt Date: 20080307
  Transmission Date: 20080703
  Serious: Yes (Other)
  Sender: FDA-Public Use
  Company Number: US-NOVOPROD-273052

PATIENT
  Sex: Female

DRUGS (1)
  1. ACTIVELLA [Suspect]
     Indication: ATROPHIC VULVOVAGINITIS
     Dosage: 1 TAB, QD
     Route: 048
     Dates: start: 20020101

REACTIONS (1)
  - ENDOMETRIAL CANCER [None]
